FAERS Safety Report 24206080 (Version 1)
Quarter: 2024Q3

REPORT INFORMATION
  Report Type: Spontaneous
  Country: US (occurrence: US)
  Receive Date: 20240813
  Receipt Date: 20240813
  Transmission Date: 20241016
  Serious: No
  Sender: TAIHO ONCOLOGY INC
  Company Number: US-TAIHOP-2024-007704

PATIENT
  Sex: Male

DRUGS (1)
  1. LONSURF [Suspect]
     Active Substance: TIPIRACIL HYDROCHLORIDE\TRIFLURIDINE
     Indication: Malignant neoplasm of unknown primary site
     Dosage: FORM STRENGTH: 15MG AND 20MG?CYCLE UNKNOWN
     Route: 048
     Dates: start: 202406

REACTIONS (2)
  - Illness [Unknown]
  - Disease progression [Unknown]
